FAERS Safety Report 19267655 (Version 2)
Quarter: 2021Q2

REPORT INFORMATION
  Report Type: Spontaneous
  Country: NL (occurrence: NL)
  Receive Date: 20210517
  Receipt Date: 20210518
  Transmission Date: 20210717
  Serious: Yes (Other)
  Sender: FDA-Public Use
  Company Number: NVSC2021NL107967

PATIENT
  Weight: 2.06 kg

DRUGS (5)
  1. EPIRUBICIN [Suspect]
     Active Substance: EPIRUBICIN
     Indication: FOETAL EXPOSURE DURING PREGNANCY
     Dosage: MATERNAL DOSE: Q2W, 4 CYCLES
     Route: 064
  2. PACLITAXEL. [Suspect]
     Active Substance: PACLITAXEL
     Indication: FOETAL EXPOSURE DURING PREGNANCY
     Dosage: MATERNAL DOSE: QW, 1 CYCLE
     Route: 064
  3. CYCLOPHOSPHAMIDE. [Suspect]
     Active Substance: CYCLOPHOSPHAMIDE
     Indication: FOETAL EXPOSURE DURING PREGNANCY
     Dosage: MATERNAL DOSE: Q2W, 4 CYCLES
     Route: 064
  4. PEGFILGRASTIM [Suspect]
     Active Substance: PEGFILGRASTIM
     Indication: FOETAL EXPOSURE DURING PREGNANCY
     Dosage: MATERNAL DOSE: 4 ADMINISTRATIONS
     Route: 064
  5. DOCETAXEL. [Suspect]
     Active Substance: DOCETAXEL
     Indication: FOETAL EXPOSURE DURING PREGNANCY
     Dosage: MATERNAL DOSE: Q3W, 3 CYCLES
     Route: 064

REACTIONS (7)
  - Speech disorder developmental [Unknown]
  - Behaviour disorder [Unknown]
  - Emotional disorder [Unknown]
  - Foetal exposure during pregnancy [Unknown]
  - Overweight [Unknown]
  - Premature baby [Unknown]
  - Cognitive disorder [Unknown]
